FAERS Safety Report 6564345-1 (Version None)
Quarter: 2010Q1

REPORT INFORMATION
  Report Type: 
  Country: None (occurrence: None)
  Receive Date: 20100201
  Receipt Date: 20100118
  Transmission Date: 20100710
  Serious: Yes (Other)
  Sender: FDA-Public Use
  Company Number: IT-JNJFOC-20100111549

PATIENT
  Sex: Female

DRUGS (3)
  1. CONTRAMAL [Suspect]
     Indication: HEADACHE
     Route: 048
  2. ENAPREN [Concomitant]
     Route: 048
  3. NORVASC [Concomitant]

REACTIONS (2)
  - NAUSEA [None]
  - VERTIGO [None]
